FAERS Safety Report 6221884-0 (Version None)
Quarter: 2009Q2

REPORT INFORMATION
  Report Type: 
  Country: None (occurrence: None)
  Receive Date: 20090608
  Receipt Date: 20090608
  Transmission Date: 20091009
  Serious: No
  Sender: FDA-Public Use
  Company Number: None

PATIENT
  Sex: Female
  Weight: 63.5036 kg

DRUGS (1)
  1. METOCLOPRAMIDE HCL 10MG [Suspect]
     Indication: GASTROOESOPHAGEAL REFLUX DISEASE
     Dosage: 5 MG 4 TIMES DAILY
     Dates: start: 20060831, end: 20070831

REACTIONS (7)
  - ACQUIRED CLAW TOE [None]
  - ANXIETY [None]
  - BRUXISM [None]
  - DEPRESSION [None]
  - DYSKINESIA [None]
  - GRIMACING [None]
  - LOOSE TOOTH [None]
